FAERS Safety Report 18150659 (Version 3)
Quarter: 2020Q3

REPORT INFORMATION
  Report Type: Report from Study
  Country: CA (occurrence: CA)
  Receive Date: 20200814
  Receipt Date: 20200918
  Transmission Date: 20201103
  Serious: Yes (Death)
  Sender: FDA-Public Use
  Company Number: CA-REGENERON PHARMACEUTICALS, INC.-2020-69914

PATIENT

DRUGS (1)
  1. EYLEA [Suspect]
     Active Substance: AFLIBERCEPT
     Indication: PRODUCT USED FOR UNKNOWN INDICATION
     Dosage: TOTAL EYLEA DOSE AND LAST DOSE PRIOR THE EVENT WERE NOT REPORTED
     Route: 031
     Dates: start: 20181218

REACTIONS (1)
  - Death [Fatal]

NARRATIVE: CASE EVENT DATE: 20200705
